FAERS Safety Report 11242175 (Version 1)
Quarter: 2015Q3

REPORT INFORMATION
  Report Type: Report from Study
  Country: JP (occurrence: JP)
  Receive Date: 20150707
  Receipt Date: 20150707
  Transmission Date: 20151125
  Serious: Yes (Hospitalization)
  Sender: FDA-Public Use
  Company Number: JP-ROCHE-1603800

PATIENT
  Age: 8 Year
  Sex: Male

DRUGS (2)
  1. OMALIZUMAB [Suspect]
     Active Substance: OMALIZUMAB
     Indication: INFANTILE ASTHMA
     Route: 058
     Dates: start: 20140109
  2. ADOAIR [Concomitant]
     Active Substance: FLUTICASONE PROPIONATE\SALMETEROL XINAFOATE
     Route: 065

REACTIONS (1)
  - Asthma [Unknown]

NARRATIVE: CASE EVENT DATE: 20150618
